FAERS Safety Report 5272441-4 (Version None)
Quarter: 2007Q1

REPORT INFORMATION
  Report Type: 
  Country: None (occurrence: None)
  Receive Date: 20070319
  Receipt Date: 20070306
  Transmission Date: 20070707
  Serious: Yes (Hospitalization)
  Sender: FDA-Public Use
  Company Number: B0461091A

PATIENT
  Age: 52 Year
  Sex: Female

DRUGS (3)
  1. IMITREX [Suspect]
     Indication: MIGRAINE
     Dosage: 50 MG / AS REQUIRED / UNKNOWN
  2. IBUPROFEN [Concomitant]
  3. CITALOPRAM HYDROBROMIDE [Concomitant]

REACTIONS (1)
  - SPLENIC INFARCTION [None]
